FAERS Safety Report 6493038-4 (Version None)
Quarter: 2009Q4

REPORT INFORMATION
  Report Type: 
  Country: None (occurrence: None)
  Receive Date: 20091214
  Receipt Date: 20091204
  Transmission Date: 20100525
  Serious: Yes (Hospitalization)
  Sender: FDA-Public Use
  Company Number: GXKR2009US13126

PATIENT
  Age: 55 Year
  Sex: Female

DRUGS (4)
  1. CITALOPRAM HYDROBROMIDE [Suspect]
     Indication: DEPRESSION
  2. METHYLENE BLUE (NGX) [Interacting]
     Dosage: 7.5 MG/KG, UNK
  3. DEXTROSE [Concomitant]
     Dosage: 100 ML (IN WATER)
  4. BUPROPION HCL [Concomitant]
     Indication: DEPRESSION

REACTIONS (14)
  - AGITATION [None]
  - APHASIA [None]
  - BLINDNESS CORTICAL [None]
  - CHOREOATHETOSIS [None]
  - CONFUSIONAL STATE [None]
  - DRUG INTERACTION [None]
  - ENCEPHALOPATHY [None]
  - EYE MOVEMENT DISORDER [None]
  - HYPERHIDROSIS [None]
  - HYPERREFLEXIA [None]
  - HYPERTENSION [None]
  - MYDRIASIS [None]
  - OPSOCLONUS MYOCLONUS [None]
  - TACHYCARDIA [None]
